FAERS Safety Report 6621721-6 (Version None)
Quarter: 2010Q1

REPORT INFORMATION
  Report Type: 
  Country: None (occurrence: None)
  Receive Date: 20100223
  Receipt Date: 20100104
  Transmission Date: 20100710
  Serious: No
  Sender: FDA-Public Use
  Company Number: 005335

PATIENT
  Sex: Female

DRUGS (4)
  1. CIMZIA [Suspect]
     Indication: CROHN'S DISEASE
     Dosage: SUBCUTANEOUS
     Route: 058
     Dates: start: 20080901
  2. PENTASA [Concomitant]
  3. CALCIUM [Concomitant]
  4. IRON [Concomitant]

REACTIONS (3)
  - NASAL CONGESTION [None]
  - ORAL SURGERY [None]
  - PAIN [None]
